FAERS Safety Report 6328879-7 (Version None)
Quarter: 2009Q3

REPORT INFORMATION
  Report Type: 
  Country: None (occurrence: None)
  Receive Date: 20090824
  Receipt Date: 20090824
  Transmission Date: 20100115
  Serious: Yes (Disabling)
  Sender: FDA-Public Use
  Company Number: None

PATIENT
  Age: 38 Year
  Sex: Female
  Weight: 78.9259 kg

DRUGS (1)
  1. ZICAM COLD REMEDY NASAL GEL HEMEOPATHIC ZICAM [Suspect]
     Indication: NASOPHARYNGITIS
     Dosage: 1 PUMP PER NOSTRIL ONCE NASAL (ONE TIME)
     Route: 045
     Dates: start: 20081219, end: 20081219

REACTIONS (5)
  - AGEUSIA [None]
  - ANOSMIA [None]
  - BURNING SENSATION [None]
  - HYPOGEUSIA [None]
  - HYPOSMIA [None]
